FAERS Safety Report 25500554 (Version 1)
Quarter: 2025Q3

REPORT INFORMATION
  Report Type: Spontaneous
  Country: US (occurrence: US)
  Receive Date: 20250701
  Receipt Date: 20250701
  Transmission Date: 20251020
  Serious: No
  Sender: AVKARE
  Company Number: US-AvKARE-2179703

PATIENT

DRUGS (1)
  1. POLYVINYL ALCOHOL [Suspect]
     Active Substance: POLYVINYL ALCOHOL

REACTIONS (1)
  - Ocular hyperaemia [Not Recovered/Not Resolved]
